FAERS Safety Report 14612098 (Version 2)
Quarter: 2018Q1

REPORT INFORMATION
  Report Type: Spontaneous
  Country: US (occurrence: US)
  Receive Date: 20180308
  Receipt Date: 20180329
  Transmission Date: 20180509
  Serious: No
  Sender: FDA-Public Use
  Company Number: US-PFIZER INC-2018093723

PATIENT
  Age: 84 Year
  Sex: Male

DRUGS (17)
  1. SUTENT [Suspect]
     Active Substance: SUNITINIB MALATE
     Indication: RENAL CELL CARCINOMA
     Dosage: 37.5 MG, CYCLIC (TAKE 1 CAPSULE BY MOUTH EVERY DAY FOR 4 WEEKS ON, 2 WEEKS OFF)
     Route: 048
     Dates: start: 20180201, end: 2018
  2. NITROSTAT [Concomitant]
     Active Substance: NITROGLYCERIN
     Dosage: 0.4 MG, UNK
     Route: 060
  3. ASPIR-81 [Concomitant]
     Active Substance: ASPIRIN
     Dosage: 81 MG, UNK
  4. DIAZEPAM. [Concomitant]
     Active Substance: DIAZEPAM
     Dosage: 2 MG, UNK
  5. ISOSORBIDE MONONITRATE. [Concomitant]
     Active Substance: ISOSORBIDE MONONITRATE
     Dosage: 30 MG, UNK (TB2)
  6. SIMVASTATIN. [Concomitant]
     Active Substance: SIMVASTATIN
     Dosage: 40 MG, UNK
  7. TAMSULOSIN HCL [Concomitant]
     Active Substance: TAMSULOSIN HYDROCHLORIDE
     Dosage: 0.4 MG, UNK
  8. ATENOLOL. [Concomitant]
     Active Substance: ATENOLOL
     Dosage: 50 MG, UNK
  9. QUINAPRIL. [Concomitant]
     Active Substance: QUINAPRIL
     Dosage: 20 MG, UNK
  10. ONDANSETRON [Concomitant]
     Active Substance: ONDANSETRON
     Dosage: 4 MG, UNK (TBD)
  11. HYDROCHLOROT [Concomitant]
     Active Substance: HYDROCHLOROTHIAZIDE
     Dosage: 25 MG, UNK
  12. AZO URINARY [Concomitant]
     Dosage: 97.5 MG, UNK
  13. BETHANECHOL [Concomitant]
     Active Substance: BETHANECHOL
     Dosage: 25 MG, UNK
  14. CLOPIDOGREL [Concomitant]
     Active Substance: CLOPIDOGREL BISULFATE
     Dosage: 75 MG, UNK
  15. OMEPRAZOLE. [Concomitant]
     Active Substance: OMEPRAZOLE
     Dosage: 40 MG, UNK (CPD)
  16. PROCHLORPERAZ [Concomitant]
     Active Substance: PROCHLORPERAZINE MALEATE
     Dosage: 10 MG, UNK
  17. RANEXA [Concomitant]
     Active Substance: RANOLAZINE
     Dosage: 1000 MG, UNK (TB1)

REACTIONS (5)
  - Fatigue [Unknown]
  - Feeding disorder [Not Recovered/Not Resolved]
  - Stomatitis [Not Recovered/Not Resolved]
  - Nausea [Not Recovered/Not Resolved]
  - Vomiting [Not Recovered/Not Resolved]

NARRATIVE: CASE EVENT DATE: 2018
